FAERS Safety Report 6440024-6 (Version None)
Quarter: 2009Q4

REPORT INFORMATION
  Report Type: 
  Country: None (occurrence: None)
  Receive Date: 20091113
  Receipt Date: 20091113
  Transmission Date: 20100525
  Serious: No
  Sender: FDA-Public Use
  Company Number: None

PATIENT

DRUGS (6)
  1. OXALIPLATIN [Suspect]
     Indication: MALIGNANT HEPATOBILIARY NEOPLASM
  2. OXALIPLATIN [Suspect]
     Indication: PANCREATIC CARCINOMA
  3. ORAL CAPECITABINE [Suspect]
     Indication: MALIGNANT HEPATOBILIARY NEOPLASM
  4. ORAL CAPECITABINE [Suspect]
     Indication: PANCREATIC CARCINOMA
  5. SORAFENIB [Suspect]
     Indication: MALIGNANT HEPATOBILIARY NEOPLASM
  6. SORAFENIB [Suspect]
     Indication: PANCREATIC CARCINOMA

REACTIONS (3)
  - INCORRECT DRUG ADMINISTRATION RATE [None]
  - MEDICATION ERROR [None]
  - RASH MACULO-PAPULAR [None]
